FAERS Safety Report 18503409 (Version 1)
Quarter: 2020Q4

REPORT INFORMATION
  Report Type: Spontaneous
  Country: US (occurrence: US)
  Receive Date: 20201113
  Receipt Date: 20201113
  Transmission Date: 20210114
  Serious: Yes (Other)
  Sender: FDA-Public Use
  Company Number: US-TEVA-2020-US-1848676

PATIENT
  Age: 72 Year
  Sex: Female

DRUGS (1)
  1. TEVA ALPRAZOLAM [Suspect]
     Active Substance: ALPRAZOLAM
     Indication: INSOMNIA
     Dosage: .5 MILLIGRAM DAILY;
     Route: 065

REACTIONS (4)
  - Rotator cuff repair [Unknown]
  - Illness [Unknown]
  - Dyspepsia [Unknown]
  - Off label use [Unknown]
